FAERS Safety Report 9115160 (Version 2)
Quarter: 2013Q1

REPORT INFORMATION
  Report Type: Spontaneous
  Country: AU (occurrence: AU)
  Receive Date: 20130225
  Receipt Date: 20130227
  Transmission Date: 20140127
  Serious: Yes (Death, Other)
  Sender: FDA-Public Use
  Company Number: AU-JNJFOC-20130211794

PATIENT
  Age: 23 Year
  Sex: Female

DRUGS (5)
  1. ITRACONAZOLE [Suspect]
     Indication: PROPHYLAXIS
     Route: 065
  2. VFEND [Suspect]
     Indication: ASPERGILLUS INFECTION
     Route: 042
  3. AMBISOME [Suspect]
     Indication: ASPERGILLUS INFECTION
     Route: 065
  4. ANIDULAFUNGIN [Suspect]
     Indication: ASPERGILLUS INFECTION
     Route: 065
  5. UNKNOWN MEDICATION [Concomitant]
     Route: 065

REACTIONS (3)
  - Bronchopulmonary aspergillosis [Fatal]
  - Liver function test abnormal [Not Recovered/Not Resolved]
  - Drug level below therapeutic [Unknown]
